FAERS Safety Report 5460141-7 (Version None)
Quarter: 2007Q3

REPORT INFORMATION
  Report Type: 
  Country: None (occurrence: None)
  Receive Date: 20070919
  Receipt Date: 20070518
  Transmission Date: 20080115
  Serious: No
  Sender: FDA-Public Use
  Company Number: US-ASTRAZENECA-2007UW12465

PATIENT
  Age: 47 Year
  Sex: Female
  Weight: 59 kg

DRUGS (2)
  1. SEROQUEL [Suspect]
     Indication: BIPOLAR DISORDER
     Route: 048
     Dates: start: 20070501
  2. SEROQUEL [Suspect]
     Route: 048

REACTIONS (6)
  - AMENORRHOEA [None]
  - BREAST PAIN [None]
  - FATIGUE [None]
  - HEADACHE [None]
  - MANIA [None]
  - SOMNOLENCE [None]
